FAERS Safety Report 8968928 (Version 1)
Quarter: 2012Q4

REPORT INFORMATION
  Report Type: Spontaneous
  Country: US (occurrence: None)
  Receive Date: 20121214
  Receipt Date: 20121214
  Transmission Date: 20130627
  Serious: No
  Sender: FDA-Public Use
  Company Number: None

PATIENT
  Age: 61 Year
  Sex: Female
  Weight: 59.88 kg

DRUGS (1)
  1. LEVOTHYROXINE 0.088MG LANNETT [Suspect]
     Indication: DISORDER THYROID
     Dates: start: 20120914, end: 20121012

REACTIONS (5)
  - Asthenia [None]
  - Depression [None]
  - Weight increased [None]
  - Alopecia [None]
  - Product substitution issue [None]
